FAERS Safety Report 4893542-6 (Version None)
Quarter: 2006Q1

REPORT INFORMATION
  Report Type: 
  Country: None (occurrence: None)
  Receive Date: 20060127
  Receipt Date: 20051205
  Transmission Date: 20060701
  Serious: Yes (Death, Hospitalization)
  Sender: FDA-Public Use
  Company Number: 2005UW18283

PATIENT
  Age: 76 Year
  Sex: Male
  Weight: 99.8 kg

DRUGS (12)
  1. TOPROL-XL [Suspect]
     Indication: CARDIAC FAILURE CONGESTIVE
     Route: 048
     Dates: start: 20050801
  2. PLAVIX [Concomitant]
  3. ADVAIR DISKUS 100/50 [Concomitant]
  4. FOLIC ACID [Concomitant]
  5. ALLOPURINOL [Concomitant]
  6. ZETIA [Concomitant]
  7. COMBIVENT [Concomitant]
  8. PREVACID [Concomitant]
  9. ASPIRIN [Concomitant]
  10. NORVASC [Concomitant]
  11. LASIX [Concomitant]
  12. ATENOLOL [Concomitant]

REACTIONS (9)
  - ABDOMINAL PAIN UPPER [None]
  - ANOREXIA [None]
  - BLOOD DISORDER [None]
  - CARDIAC DISORDER [None]
  - DECREASED APPETITE [None]
  - HEART RATE DECREASED [None]
  - HYPOTENSION [None]
  - MYOCARDIAL INFARCTION [None]
  - PNEUMONIA [None]
